FAERS Safety Report 21650642 (Version 1)
Quarter: 2022Q4

REPORT INFORMATION
  Report Type: Spontaneous
  Country: JP (occurrence: JP)
  Receive Date: 20221128
  Receipt Date: 20221128
  Transmission Date: 20230112
  Serious: Yes (Hospitalization)
  Sender: FDA-Public Use
  Company Number: JP-MYLANLABS-2022M1130952

PATIENT
  Age: 86 Year
  Sex: Female

DRUGS (10)
  1. RISEDRONATE SODIUM [Suspect]
     Active Substance: RISEDRONATE SODIUM
     Indication: Osteoporosis
     Dosage: 17.5 MILLIGRAM, QW
     Route: 048
     Dates: start: 2005, end: 2015
  2. TERIPARATIDE [Suspect]
     Active Substance: TERIPARATIDE
     Indication: Osteoporosis
     Dosage: 20 MICROGRAM, QD
     Route: 065
     Dates: start: 2015
  3. DENOSUMAB [Suspect]
     Active Substance: DENOSUMAB
     Indication: Osteoporosis
     Dosage: 60 MILLIGRAM, TWICE A YEAR
     Route: 058
     Dates: start: 201601
  4. LEVOTHYROXINE SODIUM [Concomitant]
     Active Substance: LEVOTHYROXINE SODIUM
     Indication: Hypothyroidism
     Dosage: 37.5 MICROGRAM, QD
     Route: 048
  5. ATORVASTATIN CALCIUM [Concomitant]
     Active Substance: ATORVASTATIN CALCIUM
     Indication: Dyslipidaemia
     Dosage: 50 MILLIGRAM, QD
     Route: 048
  6. ALLOPURINOL [Concomitant]
     Active Substance: ALLOPURINOL
     Indication: Hyperuricaemia
     Dosage: 8 MILLIGRAM, QD
     Route: 048
  7. CANDESARTAN CILEXETIL [Concomitant]
     Active Substance: CANDESARTAN CILEXETIL
     Indication: Hypertension
     Dosage: 6.25 MILLIGRAM, QD
     Route: 048
  8. HYDROCHLOROTHIAZIDE [Concomitant]
     Active Substance: HYDROCHLOROTHIAZIDE
     Indication: Hypertension
     Dosage: 5 MILLIGRAM, QD
     Route: 048
  9. TRIMEBUTINE MALEATE [Concomitant]
     Active Substance: TRIMEBUTINE MALEATE
     Indication: Dystonia
     Dosage: 100 MILLIGRAM, QD
     Route: 048
  10. ETIZOLAM [Concomitant]
     Active Substance: ETIZOLAM
     Indication: Dystonia
     Dosage: 1 MILLIGRAM, QD
     Route: 048

REACTIONS (1)
  - Ulna fracture [Recovering/Resolving]
